FAERS Safety Report 16421838 (Version 7)
Quarter: 2022Q1

REPORT INFORMATION
  Report Type: Spontaneous
  Country: US (occurrence: None)
  Receive Date: 20190612
  Receipt Date: 20220330
  Transmission Date: 20220423
  Serious: Yes (Other)
  Sender: FDA-Public Use
  Company Number: 2018SF15151

PATIENT
  Age: 885 Month
  Sex: Male
  Weight: 113.4 kg

DRUGS (33)
  1. NEXIUM [Suspect]
     Active Substance: ESOMEPRAZOLE MAGNESIUM
     Indication: Gastric pH decreased
     Route: 048
  2. PRILOSEC [Suspect]
     Active Substance: OMEPRAZOLE MAGNESIUM
     Indication: Gastric pH decreased
     Route: 048
     Dates: start: 2012, end: 2015
  3. PRILOSEC [Suspect]
     Active Substance: OMEPRAZOLE MAGNESIUM
     Indication: Gastrooesophageal reflux disease
     Route: 048
     Dates: start: 2012, end: 2015
  4. PRILOSEC [Suspect]
     Active Substance: OMEPRAZOLE MAGNESIUM
     Indication: Gastric pH decreased
     Dosage: GENERIC
     Route: 065
     Dates: start: 20140110, end: 20140210
  5. PRILOSEC [Suspect]
     Active Substance: OMEPRAZOLE MAGNESIUM
     Indication: Gastrooesophageal reflux disease
     Dosage: GENERIC
     Route: 065
     Dates: start: 20140110, end: 20140210
  6. PRILOSEC OTC [Suspect]
     Active Substance: OMEPRAZOLE MAGNESIUM
     Indication: Gastric pH decreased
     Route: 048
     Dates: start: 2012, end: 2015
  7. LANSOPRAZOLE [Suspect]
     Active Substance: LANSOPRAZOLE
     Indication: Gastrooesophageal reflux disease
     Dosage: GENERIC
     Route: 065
     Dates: start: 20150206, end: 20160810
  8. PANTOPRAZOLE [Suspect]
     Active Substance: PANTOPRAZOLE
     Indication: Gastrooesophageal reflux disease
     Dosage: GENERIC
     Route: 065
     Dates: start: 20160810, end: 20180116
  9. NIFEDIPINE [Concomitant]
     Active Substance: NIFEDIPINE
  10. GLIPIZIDE [Concomitant]
     Active Substance: GLIPIZIDE
  11. INDOMETHACIN [Concomitant]
     Active Substance: INDOMETHACIN
  12. CARVEDILOL [Concomitant]
     Active Substance: CARVEDILOL
  13. IBUPROFEN [Concomitant]
     Active Substance: IBUPROFEN
  14. LEVEMIR [Concomitant]
     Active Substance: INSULIN DETEMIR
  15. FUROSEMIDE [Concomitant]
     Active Substance: FUROSEMIDE
     Indication: Acquired cystic kidney disease
     Dates: start: 20160426, end: 20180711
  16. AMLODIPINE BESYLATE [Concomitant]
     Active Substance: AMLODIPINE BESYLATE
     Indication: Blood pressure measurement
     Dates: start: 20151109, end: 20180806
  17. DOXAZOSIN [Concomitant]
     Active Substance: DOXAZOSIN MESYLATE
     Indication: Blood pressure measurement
     Dates: start: 20160809, end: 20180705
  18. DOXAZOSIN [Concomitant]
     Active Substance: DOXAZOSIN MESYLATE
     Indication: Blood pressure measurement
     Dates: start: 20160809, end: 20180705
  19. KETOTIFEN [Concomitant]
     Active Substance: KETOTIFEN
  20. CLOTRIMAZOLE [Concomitant]
     Active Substance: CLOTRIMAZOLE
  21. OFLOXACIN [Concomitant]
     Active Substance: OFLOXACIN
  22. LORATADINE [Concomitant]
     Active Substance: LORATADINE
  23. NYSTATIN [Concomitant]
     Active Substance: NYSTATIN
  24. HYDRALAZINE [Concomitant]
     Active Substance: HYDRALAZINE HYDROCHLORIDE
  25. AMOXICILLIN [Concomitant]
     Active Substance: AMOXICILLIN
  26. FLUTICASONE [Concomitant]
     Active Substance: FLUTICASONE
     Dates: start: 20160301, end: 20180103
  27. FLUTICASONE [Concomitant]
     Active Substance: FLUTICASONE
     Dates: start: 20160301, end: 20180103
  28. LOSARTAN [Concomitant]
     Active Substance: LOSARTAN
     Dates: start: 20160729, end: 20180705
  29. LOSARTAN [Concomitant]
     Active Substance: LOSARTAN
     Dates: start: 20160729, end: 20180705
  30. PRAVASTATIN [Concomitant]
     Active Substance: PRAVASTATIN
     Dates: start: 20160809, end: 20180407
  31. PRAVASTATIN [Concomitant]
     Active Substance: PRAVASTATIN
     Dates: start: 20160809, end: 20180407
  32. TRIAMCINOLONE [Concomitant]
     Active Substance: TRIAMCINOLONE
  33. LISINOPRIL [Concomitant]
     Active Substance: LISINOPRIL
     Dates: start: 20140128

REACTIONS (8)
  - Acute kidney injury [Unknown]
  - Chronic kidney disease [Not Recovered/Not Resolved]
  - End stage renal disease [Not Recovered/Not Resolved]
  - Nephrogenic anaemia [Unknown]
  - Renal failure [Unknown]
  - Renal injury [Unknown]
  - Tubulointerstitial nephritis [Unknown]
  - Dyspepsia [Unknown]

NARRATIVE: CASE EVENT DATE: 20151001
